FAERS Safety Report 9553316 (Version 2)
Quarter: 2013Q3

REPORT INFORMATION
  Report Type: Report from Study
  Country: DE (occurrence: DE)
  Receive Date: 20130925
  Receipt Date: 20130930
  Transmission Date: 20140515
  Serious: Yes (Hospitalization)
  Sender: FDA-Public Use
  Company Number: DE-ROCHE-1280867

PATIENT
  Sex: Female

DRUGS (5)
  1. RANIBIZUMAB [Suspect]
     Indication: AGE-RELATED MACULAR DEGENERATION
     Route: 050
     Dates: start: 20120502
  2. RANIBIZUMAB [Suspect]
     Route: 050
     Dates: start: 20120530
  3. RANIBIZUMAB [Suspect]
     Route: 050
     Dates: start: 20120627
  4. RANIBIZUMAB [Suspect]
     Route: 050
     Dates: start: 20121019
  5. RANIBIZUMAB [Suspect]
     Route: 050
     Dates: start: 20121116

REACTIONS (1)
  - Liver disorder [Unknown]
